FAERS Safety Report 6744282-X (Version None)
Quarter: 2010Q2

REPORT INFORMATION
  Report Type: 
  Country: None (occurrence: None)
  Receive Date: 20100527
  Receipt Date: 20100524
  Transmission Date: 20101027
  Serious: Yes (Other)
  Sender: FDA-Public Use
  Company Number: ES-MERCK-1002ESP00001

PATIENT
  Age: 73 Year
  Sex: Female

DRUGS (7)
  1. FOSAMAX PLUS D [Suspect]
     Indication: OSTEOPOROSIS
     Route: 048
     Dates: start: 20060101, end: 20091215
  2. ATORVASTATIN CALCIUM [Concomitant]
     Indication: DYSLIPIDAEMIA
     Route: 048
  3. CALCIUM CARBONATE AND CHOLECALCIFEROL [Concomitant]
     Indication: OSTEOPOROSIS
     Route: 048
  4. IBUPROFEN [Concomitant]
     Route: 048
  5. MELOXICAM [Concomitant]
     Indication: ARTHRALGIA
     Route: 048
  6. METFORMIN HYDROCHLORIDE [Concomitant]
     Indication: BLOOD GLUCOSE ABNORMAL
     Route: 048
  7. RABEPRAZOLE SODIUM [Concomitant]
     Indication: GASTRITIS
     Route: 048

REACTIONS (3)
  - COLON CANCER [None]
  - METASTASES TO OVARY [None]
  - OSTEONECROSIS OF JAW [None]
